FAERS Safety Report 16059073 (Version 1)
Quarter: 2019Q1

REPORT INFORMATION
  Report Type: Spontaneous
  Country: ES (occurrence: ES)
  Receive Date: 20190311
  Receipt Date: 20190311
  Transmission Date: 20190418
  Serious: Yes (Hospitalization)
  Sender: FDA-Public Use
  Company Number: PHHY2019ES052952

PATIENT
  Age: 50 Year

DRUGS (1)
  1. AMOXICILLIN. [Suspect]
     Active Substance: AMOXICILLIN
     Indication: PRODUCT USED FOR UNKNOWN INDICATION
     Route: 062

REACTIONS (6)
  - Rash [Unknown]
  - Erythema [Unknown]
  - Symmetrical drug-related intertriginous and flexural exanthema [Unknown]
  - Macule [Unknown]
  - Rash macular [Unknown]
  - Coagulopathy [Unknown]
